FAERS Safety Report 6974687-3 (Version None)
Quarter: 2010Q3

REPORT INFORMATION
  Report Type: 
  Country: None (occurrence: None)
  Receive Date: 20100909
  Receipt Date: 20100909
  Transmission Date: 20110219
  Serious: Yes (Other)
  Sender: FDA-Public Use
  Company Number: None

PATIENT
  Age: 55 Year
  Sex: Male
  Weight: 97.5234 kg

DRUGS (2)
  1. ALPRAZOLAM [Suspect]
     Indication: ANXIETY
     Dosage: 0.5MG 4 TIMES/DAY
     Dates: start: 20100601, end: 20100701
  2. ALPRAZOLAM [Suspect]
     Indication: MYALGIA
     Dosage: 0.5MG 4 TIMES/DAY
     Dates: start: 20100601, end: 20100701

REACTIONS (4)
  - ECONOMIC PROBLEM [None]
  - NO THERAPEUTIC RESPONSE [None]
  - PRODUCT SUBSTITUTION ISSUE [None]
  - PRODUCT TASTE ABNORMAL [None]
